FAERS Safety Report 7442477-3 (Version None)
Quarter: 2011Q2

REPORT INFORMATION
  Report Type: 
  Country: None (occurrence: None)
  Receive Date: 20110428
  Receipt Date: 20110427
  Transmission Date: 20111010
  Serious: No
  Sender: FDA-Public Use
  Company Number: US-PFIZER INC-2011091314

PATIENT
  Sex: Male
  Weight: 77.1 kg

DRUGS (4)
  1. CHANTIX [Suspect]
     Indication: SMOKING CESSATION THERAPY
     Dosage: 0.5 MG, UNK
     Route: 048
     Dates: start: 20110401, end: 20110401
  2. LIPITOR [Concomitant]
     Dosage: 10 MG, UNK
  3. NEXIUM [Concomitant]
     Dosage: 10 MG, UNK
  4. CHANTIX [Suspect]
     Dosage: 1 MG, UNK
     Dates: start: 20110401, end: 20110426

REACTIONS (4)
  - INSOMNIA [None]
  - DIARRHOEA [None]
  - ABDOMINAL DISCOMFORT [None]
  - PANIC ATTACK [None]
